FAERS Safety Report 7627838-1 (Version None)
Quarter: 2011Q3

REPORT INFORMATION
  Report Type: 
  Country: None (occurrence: None)
  Receive Date: 20110721
  Receipt Date: 20081112
  Transmission Date: 20111222
  Serious: Yes (Other)
  Sender: FDA-Public Use
  Company Number: US-BAYER-200829340NA

PATIENT
  Sex: Female
  Weight: 132 kg

DRUGS (60)
  1. MAGNEVIST [Suspect]
     Indication: NUCLEAR MAGNETIC RESONANCE IMAGING
     Dosage: UNK
     Dates: start: 20040823, end: 20040823
  2. SINGULAIR [Concomitant]
  3. METOPROLOL TARTRATE [Concomitant]
  4. PREDNISONE [Concomitant]
  5. LIDODERM [Concomitant]
  6. VAGIFEM [Concomitant]
  7. TEMAZEPAM [Concomitant]
  8. SINGULAIR [Concomitant]
  9. AMIODARONE HCL [Concomitant]
  10. EFFEXOR XR [Concomitant]
  11. LASIX [Concomitant]
  12. ONE-A-DAY [MINERALS NOS,VITAMINS NOS] [Concomitant]
  13. VICODIN [Concomitant]
  14. AMITRIPTYLINE HCL [Concomitant]
  15. COUMADIN [Concomitant]
  16. LASIX [Concomitant]
  17. PLAVIX [Concomitant]
  18. AVALIDE [Concomitant]
  19. MULTIHANCE [Suspect]
     Indication: NUCLEAR MAGNETIC RESONANCE IMAGING
  20. POTASSIUM CHLORIDE [Concomitant]
  21. METOLAZONE [Concomitant]
  22. OXYCONTIN [Concomitant]
  23. JANUVIA [Concomitant]
  24. GADOLINIUM IN UNSPECIFIED DRUG [Suspect]
     Dosage: UNK UNK, ONCE
     Dates: start: 20031204, end: 20031204
  25. ADVAIR DISKUS 100/50 [Concomitant]
  26. METOPROLOL TARTRATE [Concomitant]
  27. NEURONTIN [Concomitant]
  28. PROTONIX [Concomitant]
  29. LIPITOR [Concomitant]
  30. ZOLOFT [Concomitant]
  31. OMNISCAN [Suspect]
     Indication: NUCLEAR MAGNETIC RESONANCE IMAGING
     Dosage: 20 ML, ONCE
     Dates: start: 20000816, end: 20000816
  32. OPTIMARK [Suspect]
     Indication: NUCLEAR MAGNETIC RESONANCE IMAGING
  33. XOPENEX [Concomitant]
  34. FLECAINIDE ACETATE [Concomitant]
  35. PROTONIX [Concomitant]
  36. ELAVIL [Concomitant]
  37. IMITREX [Concomitant]
  38. TYLENOL W/ CODEINE NO. 4 [Concomitant]
  39. HYDROCODONE BITARTRATE [Concomitant]
  40. NOVOLIN [INSULIN] [Concomitant]
  41. VITAMIN TAB [Concomitant]
  42. XANAX [Concomitant]
  43. COREG [Concomitant]
  44. PROHANCE [Suspect]
     Indication: NUCLEAR MAGNETIC RESONANCE IMAGING
  45. SEROQUEL [Concomitant]
  46. ALTACE [Concomitant]
  47. MAGNESIUM OXIDE [Concomitant]
  48. DIGOXIN [Concomitant]
  49. HYZAAR [Concomitant]
  50. IMITREX [Concomitant]
  51. METFORMIN HCL [Concomitant]
  52. NEURONTIN [Concomitant]
  53. ALDACTONE [POTASSIUM CANRENOATE] [Concomitant]
  54. SPIRONOLACTONE [Concomitant]
  55. MEXILETINE HYDROCHLORIDE [Concomitant]
  56. AMBIEN [Concomitant]
  57. LEVOTHYROXINE SODIUM [Concomitant]
  58. PHENERGAN HCL [Concomitant]
  59. SILDENAFIL CITRATE [Concomitant]
  60. NOVOLOG [Concomitant]

REACTIONS (16)
  - LOWER EXTREMITY MASS [None]
  - SKIN ULCER [None]
  - JOINT SWELLING [None]
  - SKIN HYPOPIGMENTATION [None]
  - ANXIETY [None]
  - PARAESTHESIA [None]
  - SKIN DISCOLOURATION [None]
  - RASH [None]
  - NEPHROGENIC SYSTEMIC FIBROSIS [None]
  - EMOTIONAL DISTRESS [None]
  - MUSCULOSKELETAL STIFFNESS [None]
  - INJURY [None]
  - PAIN [None]
  - GENERAL PHYSICAL HEALTH DETERIORATION [None]
  - MOBILITY DECREASED [None]
  - PAIN IN EXTREMITY [None]
